FAERS Safety Report 5241162-6 (Version None)
Quarter: 2007Q1

REPORT INFORMATION
  Report Type: 
  Country: None (occurrence: None)
  Receive Date: 20070220
  Receipt Date: 20070212
  Transmission Date: 20070707
  Serious: Yes (Other)
  Sender: FDA-Public Use
  Company Number: 2006UW01091

PATIENT
  Age: 70 Year
  Sex: Female
  Weight: 49.9 kg

DRUGS (4)
  1. ARIMIDEX [Suspect]
     Indication: BREAST CANCER
     Route: 048
     Dates: start: 20051201
  2. DEXAMETHASONE [Suspect]
  3. MORPHINE [Concomitant]
  4. THALOMIX [Concomitant]

REACTIONS (8)
  - ARTHRALGIA [None]
  - ASTHENIA [None]
  - BONE DISORDER [None]
  - DIABETES MELLITUS [None]
  - FATIGUE [None]
  - HAIR TEXTURE ABNORMAL [None]
  - INSOMNIA [None]
  - MUSCULOSKELETAL PAIN [None]
